FAERS Safety Report 7248091-7 (Version None)
Quarter: 2011Q1

REPORT INFORMATION
  Report Type: 
  Country: None (occurrence: None)
  Receive Date: 20110127
  Receipt Date: 20110118
  Transmission Date: 20110831
  Serious: Yes (Hospitalization)
  Sender: FDA-Public Use
  Company Number: FR-B.I. PHARMACEUTICALS,INC./RIDGEFIELD-2011-FF-00044FF

PATIENT
  Age: 69 Year
  Sex: Female

DRUGS (5)
  1. HUMALOG [Concomitant]
     Indication: TYPE 1 DIABETES MELLITUS
  2. LANTUS [Concomitant]
     Indication: TYPE 1 DIABETES MELLITUS
  3. MICARDIS [Suspect]
     Indication: HYPERTENSION
     Route: 048
     Dates: start: 20101001, end: 20101027
  4. MICARDIS [Suspect]
     Route: 048
     Dates: start: 20101215
  5. UMULINE [Concomitant]
     Indication: TYPE 1 DIABETES MELLITUS

REACTIONS (4)
  - WEIGHT INCREASED [None]
  - DYSPNOEA [None]
  - ARTERIAL OCCLUSIVE DISEASE [None]
  - BLOOD PRESSURE INCREASED [None]
